FAERS Safety Report 23969996 (Version 2)
Quarter: 2025Q3

REPORT INFORMATION
  Report Type: Report from Study
  Country: US (occurrence: US)
  Receive Date: 20240613
  Receipt Date: 20250917
  Transmission Date: 20251020
  Serious: No
  Sender: AMGEN
  Company Number: US-AMGEN-USASP2024114059

PATIENT
  Sex: Male
  Weight: 77.11 kg

DRUGS (6)
  1. REPATHA [Suspect]
     Active Substance: EVOLOCUMAB
     Indication: Low density lipoprotein increased
     Dosage: 140 MILLIGRAM, Q2WK(TWICE A MONTH ON THE 1ST AND 15 )
     Route: 065
     Dates: start: 20240420
  2. VITAMINS [Concomitant]
     Active Substance: VITAMINS
  3. FISH OIL\OMEGA-3 FATTY ACIDS [Concomitant]
     Active Substance: FISH OIL\OMEGA-3 FATTY ACIDS
  4. MAGNESIUM [Concomitant]
     Active Substance: MAGNESIUM
  5. FINASTERIDE [Concomitant]
     Active Substance: FINASTERIDE
  6. CRESTOR [Concomitant]
     Active Substance: ROSUVASTATIN CALCIUM

REACTIONS (1)
  - Rash papular [Unknown]
